FAERS Safety Report 25407331 (Version 4)
Quarter: 2025Q2

REPORT INFORMATION
  Report Type: Spontaneous
  Country: CA (occurrence: CA)
  Receive Date: 20250606
  Receipt Date: 20250627
  Transmission Date: 20250717
  Serious: Yes (Hospitalization)
  Sender: PFIZER
  Company Number: CA-PFIZER INC-PV202500064279

PATIENT
  Age: 49 Year
  Sex: Male
  Weight: 98 kg

DRUGS (18)
  1. RUXIENCE [Suspect]
     Active Substance: RITUXIMAB-PVVR
     Indication: Immune thrombocytopenia
     Dosage: 836.25 MG, (375 MG/M2) WEEKLY
     Route: 042
     Dates: start: 20250526
  2. RUXIENCE [Suspect]
     Active Substance: RITUXIMAB-PVVR
     Indication: Thrombotic thrombocytopenic purpura
     Dosage: 836.25 MG, WEEKLY
     Route: 042
     Dates: start: 20250526
  3. RUXIENCE [Suspect]
     Active Substance: RITUXIMAB-PVVR
     Dosage: 836.25 MG (375 MG/M2), WEEKLY
     Route: 042
     Dates: start: 20250602
  4. RUXIENCE [Suspect]
     Active Substance: RITUXIMAB-PVVR
     Dosage: 836.25 MG (375 MG/M2), WEEKLY
     Route: 042
     Dates: start: 20250602
  5. RUXIENCE [Suspect]
     Active Substance: RITUXIMAB-PVVR
     Dosage: 836.25 MG (375 MG/M2), WEEKLY
     Route: 042
     Dates: start: 20250609
  6. RUXIENCE [Suspect]
     Active Substance: RITUXIMAB-PVVR
     Dosage: 836.25 MG (375 MG/M2), WEEKLY
     Route: 042
     Dates: start: 20250609
  7. RUXIENCE [Suspect]
     Active Substance: RITUXIMAB-PVVR
     Dosage: 836.25 MG  (375 MG/M2), WEEKLY
     Route: 042
     Dates: start: 20250619
  8. RUXIENCE [Suspect]
     Active Substance: RITUXIMAB-PVVR
     Dosage: 836.25 MG  (375 MG/M2), WEEKLY
     Route: 042
     Dates: start: 20250619
  9. ASPIRIN [Concomitant]
     Active Substance: ASPIRIN
  10. BENADRYL [Concomitant]
     Active Substance: DIPHENHYDRAMINE HYDROCHLORIDE
     Indication: Premedication
     Route: 048
  11. BENADRYL [Concomitant]
     Active Substance: DIPHENHYDRAMINE HYDROCHLORIDE
     Route: 048
     Dates: start: 20250616, end: 20250616
  12. BENADRYL [Concomitant]
     Active Substance: DIPHENHYDRAMINE HYDROCHLORIDE
     Route: 048
     Dates: start: 20250619, end: 20250619
  13. BISOPROLOL [Concomitant]
     Active Substance: BISOPROLOL
  14. LIPITOR [Concomitant]
     Active Substance: ATORVASTATIN CALCIUM
  15. NITROGLYCERIN [Concomitant]
     Active Substance: NITROGLYCERIN
  16. TYLENOL [Concomitant]
     Active Substance: ACETAMINOPHEN
     Indication: Premedication
     Route: 048
     Dates: start: 20250609
  17. TYLENOL [Concomitant]
     Active Substance: ACETAMINOPHEN
     Route: 048
     Dates: start: 20250616, end: 20250616
  18. TYLENOL [Concomitant]
     Active Substance: ACETAMINOPHEN
     Route: 048
     Dates: start: 20250619, end: 20250619

REACTIONS (5)
  - Chest pain [Unknown]
  - Blood pressure fluctuation [Unknown]
  - Headache [Unknown]
  - Pruritus [Unknown]
  - Poor venous access [Unknown]

NARRATIVE: CASE EVENT DATE: 20250526
